FAERS Safety Report 15716193 (Version 1)
Quarter: 2018Q4

REPORT INFORMATION
  Report Type: Spontaneous
  Country: FR (occurrence: FR)
  Receive Date: 20181213
  Receipt Date: 20181213
  Transmission Date: 20190205
  Serious: Yes (Hospitalization)
  Sender: FDA-Public Use
  Company Number: FR-TEVA-2018-FR-984976

PATIENT
  Age: 65 Year
  Sex: Male
  Weight: 60 kg

DRUGS (15)
  1. ONDANSETRON [Concomitant]
     Active Substance: ONDANSETRON
     Route: 065
  2. PANTOPRAZOLE [Concomitant]
     Active Substance: PANTOPRAZOLE
     Route: 065
  3. THYMOGLOBULINE [Suspect]
     Active Substance: LAPINE T-LYMPHOCYTE IMMUNE GLOBULIN
     Indication: PROPHYLAXIS AGAINST TRANSPLANT REJECTION
     Dosage: 150 MILLIGRAM DAILY; SUR 12H
     Route: 041
     Dates: start: 20180929, end: 20180930
  4. CHOLURSO 250 MG, COMPRIM? PELLICUL? [Concomitant]
     Route: 065
  5. TRAMADOL BASE [Concomitant]
     Active Substance: TRAMADOL
     Route: 065
  6. HYDROCORTISONE UPJOHN 100 MG, PR?PARATION INJECTABLE [Suspect]
     Active Substance: HYDROCORTISONE
     Indication: PREMEDICATION
     Dosage: 100 MILLIGRAM DAILY;
     Route: 030
     Dates: start: 20180929, end: 20180930
  7. FLUDARABINE TEVA [Suspect]
     Active Substance: FLUDARABINE PHOSPHATE
     Indication: STEM CELL TRANSPLANT
     Dosage: 50 MILLIGRAM DAILY;
     Route: 042
     Dates: start: 20180926, end: 20180930
  8. RIVOTRIL [Suspect]
     Active Substance: CLONAZEPAM
     Indication: PROPHYLAXIS
     Dosage: 2 MILLIGRAM DAILY;
     Route: 048
     Dates: start: 20180927, end: 20180930
  9. VALACICLOVIR [Concomitant]
     Active Substance: VALACYCLOVIR HYDROCHLORIDE
     Route: 065
  10. VFEND [Suspect]
     Active Substance: VORICONAZOLE
     Indication: PROPHYLAXIS
     Dosage: 500 MILLIGRAM DAILY;
     Route: 042
     Dates: start: 20180926
  11. POLARAMINE [Suspect]
     Active Substance: DEXCHLORPHENIRAMINE MALEATE
     Indication: PREMEDICATION
     Dosage: 1 DOSAGE FORMS DAILY;
     Route: 042
     Dates: start: 20180929, end: 20180930
  12. CEFTRIAXONE MYLAN 2 G, POUDRE POUR SOLUTION INJECTABLE IV [Suspect]
     Active Substance: CEFTRIAXONE SODIUM
     Indication: HYPERTHERMIA
     Dosage: 2 GRAM DAILY;
     Route: 042
     Dates: start: 20180929, end: 20181002
  13. METOCLOPRAMIDE. [Concomitant]
     Active Substance: METOCLOPRAMIDE
     Route: 065
  14. PARACETAMOL B BRAUN 10 MG/ML, SOLUTION POUR PERFUSION [Suspect]
     Active Substance: ACETAMINOPHEN
     Indication: PAIN
     Dosage: 1 GRAM DAILY;
     Route: 042
     Dates: start: 20180929, end: 20181002
  15. BUSILVEX 6 MG/ML, SOLUTION ? DILUER POUR PERFUSION [Suspect]
     Active Substance: BUSULFAN
     Indication: STEM CELL TRANSPLANT
     Dosage: 204 MILLIGRAM DAILY;
     Route: 042
     Dates: start: 20180927, end: 20180928

REACTIONS (1)
  - Disseminated intravascular coagulation [Recovered/Resolved]

NARRATIVE: CASE EVENT DATE: 20181001
